FAERS Safety Report 7677241-3 (Version None)
Quarter: 2011Q3

REPORT INFORMATION
  Report Type: 
  Country: None (occurrence: None)
  Receive Date: 20110811
  Receipt Date: 20110809
  Transmission Date: 20111222
  Serious: Yes (Life-Threatening, Hospitalization, Other)
  Sender: FDA-Public Use
  Company Number: JP-PFIZER INC-2011170456

PATIENT
  Age: 69 Year
  Sex: Female

DRUGS (9)
  1. LYRICA [Suspect]
     Indication: BACK PAIN
     Dosage: 75 MG PER DAY
     Route: 048
     Dates: start: 20110707, end: 20110712
  2. AMOBAN [Concomitant]
     Route: 048
  3. MOBIC [Concomitant]
     Indication: BACK PAIN
     Route: 048
  4. ASPIRIN [Concomitant]
     Indication: CARDIAC FAILURE
     Dosage: 100 MG, 1X/DAY
  5. BUPRENORPHINE HCL [Interacting]
     Indication: BACK PAIN
     Dosage: UNK
     Route: 054
  6. PREDNISOLONE [Concomitant]
     Indication: PULMONARY FIBROSIS
     Dosage: 5 MG, 1X/DAY
     Route: 048
  7. PARULEON [Concomitant]
     Route: 048
  8. REVATIO [Concomitant]
     Indication: PULMONARY HYPERTENSION
     Dosage: 20 MG, 3X/DAY
  9. REVATIO [Concomitant]
     Indication: CARDIAC FAILURE

REACTIONS (3)
  - DRUG INTERACTION [None]
  - RESPIRATORY FAILURE [None]
  - LOSS OF CONSCIOUSNESS [None]
